FAERS Safety Report 5076659-5 (Version None)
Quarter: 2006Q3

REPORT INFORMATION
  Report Type: 
  Country: None (occurrence: None)
  Receive Date: 20060810
  Receipt Date: 20010921
  Transmission Date: 20061208
  Serious: Yes (Other)
  Sender: FDA-Public Use
  Company Number: US-AVENTIS-200120916US

PATIENT
  Sex: Female
  Weight: 161.36 kg

DRUGS (1)
  1. LOVENOX [Suspect]
     Indication: SURGERY
     Dates: start: 20010920, end: 20010920

REACTIONS (8)
  - BLOOD PRESSURE DECREASED [None]
  - BLOODY DISCHARGE [None]
  - ENTEROCUTANEOUS FISTULA [None]
  - HAEMATOCRIT DECREASED [None]
  - HYPOTENSION [None]
  - PERITONEAL HAEMORRHAGE [None]
  - POSTOPERATIVE WOUND INFECTION [None]
  - TACHYCARDIA [None]
